FAERS Safety Report 9891528 (Version 3)
Quarter: 2014Q2

REPORT INFORMATION
  Report Type: Spontaneous
  Country: US (occurrence: US)
  Receive Date: 20140212
  Receipt Date: 20140619
  Transmission Date: 20141212
  Serious: No
  Sender: FDA-Public Use
  Company Number: US-THROMBOGENICS INC-JET-2013-288

PATIENT
  Age: 67 Year
  Sex: Female

DRUGS (3)
  1. JETREA [Suspect]
     Indication: VITREOUS ADHESIONS
     Dosage: 0.1 UNK, ONE TIME DOSE
     Route: 031
     Dates: start: 20131002, end: 20131002
  2. LANTUS [Concomitant]
     Indication: DIABETES MELLITUS
     Dosage: 80 UNIT, BID
  3. JANUVIA [Concomitant]
     Indication: DIABETES MELLITUS

REACTIONS (10)
  - Cystoid macular oedema [Unknown]
  - Visual acuity reduced [Not Recovered/Not Resolved]
  - Eye pain [Recovered/Resolved]
  - Visual acuity reduced transiently [Recovered/Resolved]
  - Vitreous adhesions [Recovered/Resolved]
  - Disease progression [Recovered/Resolved]
  - Eyelid ptosis [Recovered/Resolved]
  - Vitreous floaters [Unknown]
  - Vision blurred [Unknown]
  - Ophthalmological examination abnormal [Unknown]
